FAERS Safety Report 12529729 (Version 2)
Quarter: 2016Q3

REPORT INFORMATION
  Report Type: Spontaneous
  Country: US (occurrence: US)
  Receive Date: 20160706
  Receipt Date: 20160923
  Transmission Date: 20161109
  Serious: Yes (Other)
  Sender: FDA-Public Use
  Company Number: US-RECKITT BENCKISER HEALTHCARE INT LIMITED-RB-87648-2016

PATIENT
  Age: 73 Year
  Sex: Female

DRUGS (3)
  1. MUCINEX [Suspect]
     Active Substance: GUAIFENESIN
     Indication: PRODUCT USED FOR UNKNOWN INDICATION
     Dosage: 600 MG, BID (EVERY 12 HOURS)
     Route: 065
     Dates: start: 201606, end: 20160630
  2. ANTIVERT                           /00007101/ [Suspect]
     Active Substance: MECLIZINE MONOHYDROCHLORIDE\NIACIN
     Indication: VERTIGO
     Dosage: UNK
     Route: 065
     Dates: start: 201606, end: 201606
  3. ZITHROMAX [Concomitant]
     Active Substance: AZITHROMYCIN DIHYDRATE
     Indication: SINUSITIS BACTERIAL
     Dosage: UNK
     Route: 065
     Dates: start: 20160227

REACTIONS (4)
  - Headache [Recovering/Resolving]
  - Vision blurred [Recovering/Resolving]
  - Product use issue [Recovering/Resolving]
  - Confusional state [Recovering/Resolving]

NARRATIVE: CASE EVENT DATE: 201606
